FAERS Safety Report 5933667-7 (Version None)
Quarter: 2008Q4

REPORT INFORMATION
  Report Type: 
  Country: None (occurrence: None)
  Receive Date: 20081024
  Receipt Date: 20081013
  Transmission Date: 20090506
  Serious: Yes (Other)
  Sender: FDA-Public Use
  Company Number: 1000001433

PATIENT
  Age: 72 Year
  Sex: Male

DRUGS (4)
  1. ESCITALOPRAM [Suspect]
     Indication: DEPRESSION
     Dosage: 5 MG (5 MG,1 IN 1 D), ORAL
     Route: 048
     Dates: start: 20080913, end: 20080916
  2. PREVISCAN [Suspect]
     Indication: ATRIAL FIBRILLATION
     Dosage: ORAL
     Route: 048
  3. PREVISCAN [Suspect]
     Indication: HYPERTENSION
     Dosage: ORAL
     Route: 048
  4. ANTIHYPERTENSIVES [Concomitant]

REACTIONS (2)
  - CEREBRAL HAEMATOMA [None]
  - MENTAL IMPAIRMENT [None]
